FAERS Safety Report 7324657-0 (Version None)
Quarter: 2011Q1

REPORT INFORMATION
  Report Type: 
  Country: None (occurrence: None)
  Receive Date: 20110301
  Receipt Date: 20110218
  Transmission Date: 20110831
  Serious: Yes (Other)
  Sender: FDA-Public Use
  Company Number: PHHY2011FI13847

PATIENT
  Age: 80 Year
  Sex: Female

DRUGS (1)
  1. ALENDRONATE [Suspect]
     Dosage: 70 MG, QW

REACTIONS (6)
  - PAIN IN EXTREMITY [None]
  - ABASIA [None]
  - OSTEOMA [None]
  - PAIN [None]
  - FEMUR FRACTURE [None]
  - BONE FORMATION DECREASED [None]
